FAERS Safety Report 16724549 (Version 1)
Quarter: 2019Q3

REPORT INFORMATION
  Report Type: Report from Study
  Country: US (occurrence: US)
  Receive Date: 20190821
  Receipt Date: 20190821
  Transmission Date: 20191005
  Serious: Yes (Hospitalization)
  Sender: FDA-Public Use
  Company Number: US-TECHNOMED INC.-2073449

PATIENT
  Age: 62 Year
  Sex: Male
  Weight: 118 kg

DRUGS (19)
  1. VITAMIN D3 [Concomitant]
     Active Substance: CHOLECALCIFEROL
     Dates: start: 20170718
  2. FUROSEMIDE. [Concomitant]
     Active Substance: FUROSEMIDE
     Route: 065
     Dates: start: 20160816
  3. GABAPENTIN. [Concomitant]
     Active Substance: GABAPENTIN
     Route: 065
     Dates: start: 20161110
  4. ACETAMINOPHEN. [Concomitant]
     Active Substance: ACETAMINOPHEN
     Route: 065
     Dates: start: 20170718
  5. LISINOPRIL. [Concomitant]
     Active Substance: LISINOPRIL
     Route: 065
     Dates: start: 20160916, end: 20190303
  6. CARVEDILOL. [Concomitant]
     Active Substance: CARVEDILOL
     Route: 065
     Dates: start: 20160923
  7. CARVEDILOL. [Concomitant]
     Active Substance: CARVEDILOL
     Route: 065
  8. METHOCARBAMOL. [Concomitant]
     Active Substance: METHOCARBAMOL
     Route: 065
     Dates: start: 20180802
  9. CATAPRES-TTS [Suspect]
     Active Substance: CLONIDINE
     Indication: DRUG THERAPY
     Route: 062
     Dates: start: 20180802, end: 20181124
  10. INSULIN ASPART [Concomitant]
     Active Substance: INSULIN ASPART
     Route: 065
     Dates: start: 20160916
  11. METFORMIN HYDROCHLORIDE. [Concomitant]
     Active Substance: METFORMIN HYDROCHLORIDE
     Route: 065
     Dates: start: 20180328
  12. VENLAFAXINE HYDROCHLORIDE. [Concomitant]
     Active Substance: VENLAFAXINE HYDROCHLORIDE
     Route: 065
     Dates: start: 20180328
  13. CLOPIDOGREL BISULFATE. [Concomitant]
     Active Substance: CLOPIDOGREL BISULFATE
     Route: 065
     Dates: start: 20160923
  14. ASPIRIN. [Concomitant]
     Active Substance: ASPIRIN
     Route: 065
     Dates: start: 20110404
  15. INSULIN GLARGINE [Concomitant]
     Active Substance: INSULIN GLARGINE
     Dates: start: 20170718
  16. ISOSORBIDE DINITRATE. [Concomitant]
     Active Substance: ISOSORBIDE DINITRATE
     Route: 065
     Dates: start: 20170718
  17. METHADONE [Suspect]
     Active Substance: METHADONE HYDROCHLORIDE
     Route: 048
     Dates: start: 20180119, end: 20190123
  18. NICOTINE. [Concomitant]
     Active Substance: NICOTINE
     Route: 065
     Dates: start: 20170718, end: 20190608
  19. OMEPRAZOLE. [Concomitant]
     Active Substance: OMEPRAZOLE
     Route: 065
     Dates: start: 20170718

REACTIONS (1)
  - Hypertensive emergency [Recovered/Resolved]

NARRATIVE: CASE EVENT DATE: 20181122
